FAERS Safety Report 6537773-8 (Version None)
Quarter: 2010Q1

REPORT INFORMATION
  Report Type: 
  Country: None (occurrence: None)
  Receive Date: 20100114
  Receipt Date: 20100106
  Transmission Date: 20100710
  Serious: Yes (Hospitalization, Other)
  Sender: FDA-Public Use
  Company Number: JP-PFIZER INC-2010000905

PATIENT
  Age: 37 Year
  Sex: Female

DRUGS (2)
  1. ZITHROMAC SR [Suspect]
     Indication: PNEUMONIA
     Dosage: 2 G, 1X/DAY
     Dates: start: 20091221, end: 20091221
  2. RELENZA [Concomitant]
     Indication: INFLUENZA
     Dates: start: 20091222

REACTIONS (2)
  - ABDOMINAL PAIN [None]
  - HAEMATOCHEZIA [None]
